FAERS Safety Report 8478588-3 (Version None)
Quarter: 2012Q2

REPORT INFORMATION
  Report Type: 
  Country: None (occurrence: None)
  Receive Date: 20120629
  Receipt Date: 20120624
  Transmission Date: 20120825
  Serious: Yes (Hospitalization, Other)
  Sender: FDA-Public Use
  Company Number: PHHY2012DE054709

PATIENT
  Age: 21 Year
  Sex: Male

DRUGS (3)
  1. ACETAMINOPHEN [Suspect]
     Dosage: 5000 MG (1 IN 1 TOTAL)
     Dates: start: 20120624
  2. CLARITHROMYCIN [Suspect]
     Dosage: 3000 MG (1 IN 1 TOTAL)
     Route: 048
     Dates: start: 20120624
  3. ALCOHOL [Suspect]

REACTIONS (2)
  - INTENTIONAL OVERDOSE [None]
  - ALCOHOL POISONING [None]
